FAERS Safety Report 17185290 (Version 1)
Quarter: 2019Q4

REPORT INFORMATION
  Report Type: Spontaneous
  Country: US (occurrence: US)
  Receive Date: 20191220
  Receipt Date: 20191220
  Transmission Date: 20200122
  Serious: No
  Sender: FDA-Public Use
  Company Number: US-THERAPEUTICSMD-2019TMD04623

PATIENT
  Sex: Female

DRUGS (2)
  1. IMVEXXY [Suspect]
     Active Substance: ESTRADIOL
     Dosage: 1 DOSAGE UNITS, 1X/DAY AT BEDTIME
     Route: 067
     Dates: start: 20191117
  2. IMVEXXY [Suspect]
     Active Substance: ESTRADIOL
     Indication: VULVOVAGINAL DRYNESS
     Dosage: 6 SAMPLES, AT BEDTIME
     Route: 067
     Dates: start: 201910, end: 2019

REACTIONS (4)
  - Vulvovaginal discomfort [Not Recovered/Not Resolved]
  - Off label use [Not Recovered/Not Resolved]
  - Vaginal discharge [Recovering/Resolving]
  - Product residue present [Recovering/Resolving]

NARRATIVE: CASE EVENT DATE: 2019
